FAERS Safety Report 5485374-5 (Version None)
Quarter: 2007Q4

REPORT INFORMATION
  Report Type: 
  Country: None (occurrence: None)
  Receive Date: 20071015
  Receipt Date: 20071003
  Transmission Date: 20080405
  Serious: Yes (Hospitalization, Disabling, Other)
  Sender: FDA-Public Use
  Company Number: PHHO2007AU16335

PATIENT
  Age: 50 Year
  Sex: Male
  Weight: 85 kg

DRUGS (3)
  1. NEORAL [Suspect]
     Indication: LIVER TRANSPLANT
     Dosage: 900 MG / DAY
     Route: 048
     Dates: start: 20070828, end: 20070920
  2. PREDNISOLONE [Concomitant]
     Indication: LIVER TRANSPLANT
     Dosage: 20 MG / DAY
     Route: 048
     Dates: start: 20070902
  3. AZATHIOPRINE [Concomitant]
     Indication: LIVER TRANSPLANT
     Dosage: 125 MG / DAY
     Route: 048
     Dates: start: 20070904, end: 20070908

REACTIONS (29)
  - ABDOMINAL PAIN [None]
  - ACUTE ABDOMEN [None]
  - BACTERAEMIA [None]
  - BACTERIAL INFECTION [None]
  - BILE DUCT NECROSIS [None]
  - BILE DUCT OBSTRUCTION [None]
  - BILIARY ANASTOMOSIS [None]
  - BLOOD BILIRUBIN INCREASED [None]
  - BLOOD CREATININE INCREASED [None]
  - BLOOD UREA INCREASED [None]
  - CATHETER PLACEMENT [None]
  - CHOLANGITIS [None]
  - CHOLESTASIS [None]
  - DYSPNOEA [None]
  - LAPAROTOMY [None]
  - LIVER DISORDER [None]
  - LIVER FUNCTION TEST ABNORMAL [None]
  - LOCALISED INTRAABDOMINAL FLUID COLLECTION [None]
  - NEPHRITIS INTERSTITIAL [None]
  - OLIGURIA [None]
  - POST PROCEDURAL BILE LEAK [None]
  - POST PROCEDURAL SEPSIS [None]
  - REFLUX OESOPHAGITIS [None]
  - RENAL FAILURE [None]
  - RENAL IMPAIRMENT [None]
  - RENAL TUBULAR NECROSIS [None]
  - WOUND DECOMPOSITION [None]
  - WOUND DEHISCENCE [None]
  - WOUND SECRETION [None]
